FAERS Safety Report 5533642-0 (Version None)
Quarter: 2007Q4

REPORT INFORMATION
  Report Type: 
  Country: None (occurrence: None)
  Receive Date: 20071129
  Receipt Date: 20071120
  Transmission Date: 20080405
  Serious: Yes (Death, Hospitalization)
  Sender: FDA-Public Use
  Company Number: 2007-03606

PATIENT
  Age: 75 Year
  Sex: Male
  Weight: 75 kg

DRUGS (2)
  1. VELCADE [Suspect]
     Indication: MYELODYSPLASTIC SYNDROME
     Dosage: 1.80 MG, INTRAVENOUS
     Route: 042
     Dates: start: 20070911
  2. CYTARABINE [Suspect]
     Indication: MYELODYSPLASTIC SYNDROME
     Dosage: 17.90 MG, SUBCUTANEOUS
     Route: 058
     Dates: start: 20070911

REACTIONS (3)
  - AGRANULOCYTOSIS [None]
  - LUNG DISORDER [None]
  - PYREXIA [None]
